APPROVED DRUG PRODUCT: BAROS
Active Ingredient: SODIUM BICARBONATE; TARTARIC ACID
Strength: 460MG/GM;420MG/GM
Dosage Form/Route: GRANULE, EFFERVESCENT;ORAL
Application: N018509 | Product #001
Applicant: MALLINCKRODT INC
Approved: Aug 7, 1985 | RLD: No | RS: No | Type: DISCN